FAERS Safety Report 9425668 (Version 1)
Quarter: 2013Q3

REPORT INFORMATION
  Report Type: Spontaneous
  Country: FR (occurrence: FR)
  Receive Date: 20130729
  Receipt Date: 20130729
  Transmission Date: 20140515
  Serious: Yes (Hospitalization)
  Sender: FDA-Public Use
  Company Number: FR-JNJFOC-20130712663

PATIENT
  Age: 41 Year
  Sex: Female

DRUGS (6)
  1. EPITOMAX [Suspect]
     Indication: MIGRAINE
     Route: 048
     Dates: start: 2008
  2. ALMOGRAN [Concomitant]
     Indication: MIGRAINE
     Route: 065
  3. ANDROCUR [Concomitant]
     Route: 065
  4. LEVOTHYROX [Concomitant]
     Route: 065
  5. MERCILON [Concomitant]
     Route: 065
  6. CLARADOL CAFFEINE [Concomitant]
     Indication: MIGRAINE
     Route: 065

REACTIONS (2)
  - Neuropathy peripheral [Unknown]
  - Arthralgia [Unknown]
